FAERS Safety Report 10081676 (Version 2)
Quarter: 2014Q2

REPORT INFORMATION
  Report Type: Spontaneous
  Country: GB (occurrence: None)
  Receive Date: 20140414
  Receipt Date: 20140429
  Transmission Date: 20141212
  Serious: Yes (Life-Threatening, Hospitalization)
  Sender: FDA-Public Use
  Company Number: AUR-APL-2014-04279

PATIENT
  Age: 61 Year
  Sex: Male

DRUGS (4)
  1. SIMVASTATIN (SIMVASTATIN) [Suspect]
     Indication: HYPERLIPIDAEMIA
     Dosage: 20MG (20MG, 1 IN 1 D) ORAL
     Route: 048
     Dates: start: 20111213, end: 20140305
  2. NATRASLEEP [Suspect]
     Indication: PRODUCT USED FOR UNKNOWN INDICATION
     Dosage: AS REQUIRED
     Dates: start: 20140227, end: 20140304
  3. ALLOPURINOL (ALLOPURINOL) [Concomitant]
  4. PERINODPRIL ERBUMINE (PERINDOPRIL ERBUMINE) [Concomitant]

REACTIONS (13)
  - Jaundice [None]
  - Muscular weakness [None]
  - Malaise [None]
  - Lethargy [None]
  - Malaise [None]
  - Abdominal discomfort [None]
  - Hepatic failure [None]
  - Renal failure acute [None]
  - Hepatitis alcoholic [None]
  - Oliguria [None]
  - Rhabdomyolysis [None]
  - Drug interaction [None]
  - Renal failure [None]
